FAERS Safety Report 7806128-8 (Version None)
Quarter: 2011Q4

REPORT INFORMATION
  Report Type: 
  Country: None (occurrence: None)
  Receive Date: 20111011
  Receipt Date: 20111005
  Transmission Date: 20120403
  Serious: Yes (Other)
  Sender: FDA-Public Use
  Company Number: US-PFIZER INC-2011237854

PATIENT

DRUGS (4)
  1. ABILIFY [Suspect]
     Dosage: UNK
  2. EFFEXOR [Suspect]
     Dosage: UNK
  3. PEGASYS [Suspect]
     Dosage: UNK
  4. RIBAVIRIN [Suspect]
     Dosage: UNK

REACTIONS (2)
  - CONVULSION [None]
  - OVERDOSE [None]
